FAERS Safety Report 7361240-5 (Version None)
Quarter: 2011Q1

REPORT INFORMATION
  Report Type: 
  Country: None (occurrence: None)
  Receive Date: 20110318
  Receipt Date: 20110307
  Transmission Date: 20110831
  Serious: Yes (Other)
  Sender: FDA-Public Use
  Company Number: PHHY2011US19002

PATIENT
  Age: 67 Year
  Sex: Female

DRUGS (5)
  1. RECLAST [Suspect]
     Dosage: 5 MG/100ML/YEAR
     Dates: start: 20101201
  2. RECLAST [Suspect]
     Dosage: 5 MG/100ML/YEAR
  3. CALCIUM [Concomitant]
     Dosage: 1500 MG, UNK
  4. RECLAST [Suspect]
     Dosage: 5 MG/100ML/YEAR
  5. VITAMIN D [Concomitant]
     Dosage: 1000 MG, UNK

REACTIONS (8)
  - UPPER LIMB FRACTURE [None]
  - CHILLS [None]
  - INFLUENZA LIKE ILLNESS [None]
  - INFUSION SITE PAIN [None]
  - HYPOAESTHESIA [None]
  - MUSCULAR WEAKNESS [None]
  - PAIN IN EXTREMITY [None]
  - HEADACHE [None]
